FAERS Safety Report 6671415-6 (Version None)
Quarter: 2010Q2

REPORT INFORMATION
  Report Type: 
  Country: None (occurrence: None)
  Receive Date: 20100406
  Receipt Date: 20100406
  Transmission Date: 20101027
  Serious: Yes (Hospitalization)
  Sender: FDA-Public Use
  Company Number: None

PATIENT
  Sex: Female
  Weight: 65.7716 kg

DRUGS (1)
  1. YAZ [Suspect]
     Indication: ORAL CONTRACEPTION
     Dosage: 1 TABLET DAILY PO
     Route: 048
     Dates: start: 20070615, end: 20071212

REACTIONS (1)
  - TRANSVERSE SINUS THROMBOSIS [None]
